FAERS Safety Report 8875918 (Version 1)
Quarter: 2012Q4

REPORT INFORMATION
  Report Type: 
  Country: US (occurrence: US)
  Receive Date: 20121023
  Receipt Date: 20121023
  Transmission Date: 20130627
  Serious: Yes (Other)
  Sender: FDA-Public Use
  Company Number: US-GLAXOSMITHKLINE-A0998183A

PATIENT
  Age: 64 Year
  Sex: Female

DRUGS (3)
  1. RANITIDINE [Suspect]
     Indication: HYPERCHLORHYDRIA
     Dosage: 150MG Twice per day
     Route: 048
     Dates: start: 2010, end: 2010
  2. NEXIUM [Suspect]
     Indication: PRODUCT USED FOR UNKNOWN INDICATION
     Route: 065
  3. CITALOPRAM HYDROBROMIDE [Suspect]
     Indication: PRODUCT USED FOR UNKNOWN INDICATION
     Route: 065

REACTIONS (7)
  - Aphagia [Recovered/Resolved]
  - Nausea [Recovered/Resolved]
  - Burning sensation [Recovered/Resolved]
  - Abdominal pain upper [Recovered/Resolved]
  - Malaise [Unknown]
  - Hyperchlorhydria [Unknown]
  - Drug ineffective [Unknown]
